FAERS Safety Report 8301136-5 (Version None)
Quarter: 2012Q2

REPORT INFORMATION
  Report Type: 
  Country: None (occurrence: None)
  Receive Date: 20120420
  Receipt Date: 20120409
  Transmission Date: 20120825
  Serious: Yes (Other)
  Sender: FDA-Public Use
  Company Number: PHHY2012EC032961

PATIENT
  Sex: Female

DRUGS (3)
  1. LEVOTHYROXINE SODIUM [Concomitant]
     Dosage: 1 DF (50 UG), DAILY
     Dates: start: 20090101
  2. EXFORGE HCT [Suspect]
     Indication: HYPERTENSION
     Dosage: 1 DF (160/5/12.5 MG), DAILY
     Route: 048
     Dates: start: 20111213
  3. ASPIRIN [Concomitant]
     Dosage: 1 DF (81 MG), DAILY
     Dates: start: 20111129

REACTIONS (2)
  - THYROID NEOPLASM [None]
  - NECK PAIN [None]
